FAERS Safety Report 6283580-3 (Version None)
Quarter: 2009Q3

REPORT INFORMATION
  Report Type: 
  Country: None (occurrence: None)
  Receive Date: 20090722
  Receipt Date: 20090722
  Transmission Date: 20100115
  Serious: Yes (Hospitalization)
  Sender: FDA-Public Use
  Company Number: None

PATIENT
  Age: 42 Year
  Sex: Female
  Weight: 64.8644 kg

DRUGS (1)
  1. INFED [Suspect]
     Indication: IRON DEFICIENCY ANAEMIA
     Dosage: 25MG TEST DOSE IV DRIP
     Route: 041
     Dates: start: 20080919, end: 20080919

REACTIONS (13)
  - AMNESIA [None]
  - BLINDNESS UNILATERAL [None]
  - DIPLOPIA [None]
  - DYSPHAGIA [None]
  - DYSPNOEA [None]
  - EYE PAIN [None]
  - HEADACHE [None]
  - LIVER DISORDER [None]
  - MENINGITIS ASEPTIC [None]
  - NERVOUS SYSTEM DISORDER [None]
  - OROPHARYNGEAL PAIN [None]
  - PAIN IN EXTREMITY [None]
  - PALPITATIONS [None]
